FAERS Safety Report 23197884 (Version 1)
Quarter: 2023Q4

REPORT INFORMATION
  Report Type: Spontaneous
  Country: US (occurrence: None)
  Receive Date: 20231116
  Receipt Date: 20231116
  Transmission Date: 20240109
  Serious: Yes (Hospitalization)
  Sender: FDA-Public Use
  Company Number: None

PATIENT
  Sex: Female

DRUGS (7)
  1. TACROLIMUS [Suspect]
     Active Substance: TACROLIMUS
     Indication: Renal transplant
     Dosage: 0.5 MG ORAL??TAKE 1 CAPSULE (0.5 MG) BY MOUTH EVERY TWELVE HOURS FOR A TOTAL DOSE OF 1.5MG TWICE DAI
     Route: 048
     Dates: start: 20220929
  2. FAMOTIDINE [Concomitant]
     Active Substance: FAMOTIDINE
  3. FISH OIL [Concomitant]
     Active Substance: FISH OIL
  4. LANTUS SOLOS [Concomitant]
  5. MYCOPHENOLIC ACID [Concomitant]
     Active Substance: MYCOPHENOLIC ACID
  6. RANITIDINE [Concomitant]
     Active Substance: RANITIDINE
  7. VITAMIN E [Concomitant]
     Active Substance: .ALPHA.-TOCOPHEROL

REACTIONS (7)
  - Diarrhoea [None]
  - Vomiting [None]
  - Abdominal pain [None]
  - Arthralgia [None]
  - Abdominal discomfort [None]
  - Dyspepsia [None]
  - Abdominal mass [None]
